FAERS Safety Report 4648223-0 (Version None)
Quarter: 2005Q2

REPORT INFORMATION
  Report Type: 
  Country: None (occurrence: None)
  Receive Date: 20050331
  Receipt Date: 20050107
  Transmission Date: 20051028
  Serious: No
  Sender: FDA-Public Use
  Company Number: 05P-163-0285849-00

PATIENT
  Age: 73 Year
  Sex: Female
  Weight: 52.6173 kg

DRUGS (8)
  1. HUMIRA [Suspect]
     Indication: RHEUMATOID ARTHRITIS
     Dosage: 40 MG, 1 IN 2 WK, SUBCUTANEOUS
     Route: 058
     Dates: start: 20041120, end: 20041203
  2. PRIMIDONE [Concomitant]
  3. RISEDRONATE SODIUM [Concomitant]
  4. FLUVASTATIN SODIUM [Concomitant]
  5. HYZAAR [Concomitant]
  6. LEVOTHYROXINE SODIUM [Concomitant]
  7. FOLIC ACID [Concomitant]
  8. VITAMINS [Concomitant]

REACTIONS (2)
  - CONFUSIONAL STATE [None]
  - NIGHTMARE [None]
